FAERS Safety Report 8878787 (Version 2)
Quarter: 2012Q4

REPORT INFORMATION
  Report Type: 
  Country: US (occurrence: US)
  Receive Date: 20121026
  Receipt Date: 20121211
  Transmission Date: 20130627
  Serious: No
  Sender: FDA-Public Use
  Company Number: US-ASTRAZENECA-2012SE76951

PATIENT
  Age: 58 Year
  Sex: Female

DRUGS (8)
  1. SYMBICORT [Suspect]
     Indication: CHRONIC OBSTRUCTIVE PULMONARY DISEASE
     Dosage: 320 MCG, BID
     Route: 055
     Dates: start: 2010
  2. SYMBICORT [Suspect]
     Indication: CHRONIC OBSTRUCTIVE PULMONARY DISEASE
     Dosage: 160/4.5 MCG, TWO PUFFS, TWO TIMES A DAY
     Route: 055
     Dates: start: 20120916
  3. VENTOLIN [Concomitant]
     Dosage: AS REQUIRED
  4. XOPONEX [Concomitant]
     Indication: CHRONIC OBSTRUCTIVE PULMONARY DISEASE
     Dosage: FOUR TIMES A DAY
  5. MOEXIPRIL [Concomitant]
  6. DILTIAZEM [Concomitant]
  7. SINGULAIR [Concomitant]
     Dosage: GENERIC
  8. DALIRESP [Concomitant]
     Indication: CHRONIC OBSTRUCTIVE PULMONARY DISEASE
     Dosage: DAILY

REACTIONS (4)
  - Dyspnoea [Not Recovered/Not Resolved]
  - Feeling abnormal [Not Recovered/Not Resolved]
  - Hypotension [Not Recovered/Not Resolved]
  - Drug dose omission [Unknown]
